FAERS Safety Report 12277240 (Version 1)
Quarter: 2016Q2

REPORT INFORMATION
  Report Type: Spontaneous
  Country: US (occurrence: US)
  Receive Date: 20160418
  Receipt Date: 20160418
  Transmission Date: 20160815
  Serious: No
  Sender: FDA-Public Use
  Company Number: US-TEVA-639062USA

PATIENT
  Age: 44 Year
  Sex: Female
  Weight: 56.75 kg

DRUGS (3)
  1. ZECUITY [Suspect]
     Active Substance: SUMATRIPTAN SUCCINATE
     Indication: MIGRAINE
     Dosage: 6.5 MG/ 4 HOURS
     Route: 062
     Dates: start: 201511, end: 201511
  2. BOTOX [Concomitant]
     Active Substance: ONABOTULINUMTOXINA
     Indication: MIGRAINE
     Dates: start: 201508
  3. ZECUITY [Suspect]
     Active Substance: SUMATRIPTAN SUCCINATE
     Dosage: 6.5 MG/ 4 HOURS
     Route: 062
     Dates: start: 20160223, end: 20160223

REACTIONS (11)
  - Application site discolouration [Not Recovered/Not Resolved]
  - Application site vesicles [Not Recovered/Not Resolved]
  - Application site pruritus [Unknown]
  - Application site rash [Unknown]
  - Application site swelling [Unknown]
  - Skin reaction [Unknown]
  - Application site erythema [Unknown]
  - Application site reaction [Unknown]
  - Device battery issue [Unknown]
  - Application site pain [Unknown]
  - Application site inflammation [Unknown]

NARRATIVE: CASE EVENT DATE: 201511
